FAERS Safety Report 24727001 (Version 2)
Quarter: 2024Q4

REPORT INFORMATION
  Report Type: Spontaneous
  Country: CN (occurrence: CN)
  Receive Date: 20241212
  Receipt Date: 20241217
  Transmission Date: 20250115
  Serious: Yes (Hospitalization, Disabling, Other)
  Sender: NOVARTIS
  Company Number: CN-002147023-NVSC2024CN233098

PATIENT
  Age: 38 Year
  Sex: Male
  Weight: 60 kg

DRUGS (1)
  1. COSENTYX [Suspect]
     Active Substance: SECUKINUMAB
     Indication: Ankylosing spondylitis
     Dosage: 150 ML, QW
     Route: 058
     Dates: start: 20241030, end: 20241120

REACTIONS (13)
  - Ileal ulcer [Recovering/Resolving]
  - Abdominal pain [Recovering/Resolving]
  - Malnutrition [Recovering/Resolving]
  - Mouth ulceration [Recovering/Resolving]
  - Weight decreased [Recovering/Resolving]
  - Enteritis [Unknown]
  - Gastritis erosive [Unknown]
  - Blood pressure abnormal [Unknown]
  - Pharyngeal ulceration [Unknown]
  - Lymphadenopathy [Unknown]
  - Hyperaemia [Unknown]
  - Chronic gastritis [Unknown]
  - Body temperature increased [Unknown]

NARRATIVE: CASE EVENT DATE: 20241101
